FAERS Safety Report 26160208 (Version 1)
Quarter: 2025Q4

REPORT INFORMATION
  Report Type: Spontaneous
  Country: EU (occurrence: EU)
  Receive Date: 20251216
  Receipt Date: 20251216
  Transmission Date: 20260119
  Serious: Yes (Hospitalization, Other)
  Sender: AMGEN
  Company Number: None

PATIENT
  Age: 66 Year
  Sex: Female
  Weight: 69 kg

DRUGS (1)
  1. ADALIMUMAB [Suspect]
     Active Substance: ADALIMUMAB
     Indication: Crohn^s disease
     Dosage: 40 MILLIGRAM, Q2WK
     Route: 058
     Dates: start: 20230217, end: 20250312

REACTIONS (6)
  - Parotitis [Recovered/Resolved]
  - Pancreatitis [Recovered/Resolved]
  - Paradoxical psoriasis [Recovering/Resolving]
  - Swelling [Unknown]
  - Rash [Unknown]
  - Tenderness [Unknown]

NARRATIVE: CASE EVENT DATE: 20250301
